FAERS Safety Report 9037902 (Version 2)
Quarter: 2013Q1

REPORT INFORMATION
  Report Type: Spontaneous
  Country: IE (occurrence: IE)
  Receive Date: 20130129
  Receipt Date: 20130225
  Transmission Date: 20140127
  Serious: Yes (Hospitalization)
  Sender: FDA-Public Use
  Company Number: IE-009507513-1301IRL011716

PATIENT
  Sex: Female

DRUGS (2)
  1. SYCREST [Suspect]
     Indication: BIPOLAR DISORDER
     Dosage: 10 MG, 2 PER DAY
     Route: 060
  2. SYCREST [Suspect]
     Dosage: DAILY DOSE UNKNOWN
     Route: 060

REACTIONS (1)
  - Alcoholism [Unknown]
